FAERS Safety Report 6240811-3 (Version None)
Quarter: 2009Q2

REPORT INFORMATION
  Report Type: 
  Country: None (occurrence: None)
  Receive Date: 20090623
  Receipt Date: 20090612
  Transmission Date: 20091009
  Serious: Yes (Death)
  Sender: FDA-Public Use
  Company Number: DE-ELI_LILLY_AND_COMPANY-DE200905000870

PATIENT
  Sex: Female

DRUGS (13)
  1. FORTEO [Suspect]
     Indication: OSTEOPOROSIS
     Dosage: 20 UG, DAILY (1/D)
     Route: 058
     Dates: start: 20090105
  2. ASPIRIN [Concomitant]
     Dosage: UNK, UNKNOWN
     Route: 065
  3. TARGIN [Concomitant]
  4. DICLOFENAC [Concomitant]
  5. ALENDRONSAEURE STADA [Concomitant]
  6. RAMIPRIL [Concomitant]
  7. SIMVASTATIN [Concomitant]
  8. FUROSEMIDE [Concomitant]
  9. VITAMIN D [Concomitant]
  10. OMEPRAZOL [Concomitant]
  11. DECORTIN [Concomitant]
     Dosage: UNK, UNKNOWN
     Route: 065
  12. SPIRIVA [Concomitant]
     Dosage: UNK, UNKNOWN
     Route: 065
  13. SYMBICORT [Concomitant]

REACTIONS (3)
  - CACHEXIA [None]
  - CHRONIC OBSTRUCTIVE PULMONARY DISEASE [None]
  - PNEUMONIA [None]
